FAERS Safety Report 9953981 (Version 2)
Quarter: 2014Q1

REPORT INFORMATION
  Report Type: Spontaneous
  Country: US (occurrence: US)
  Receive Date: 20140304
  Receipt Date: 20140314
  Transmission Date: 20141002
  Serious: No
  Sender: FDA-Public Use
  Company Number: US-PFIZER INC-2014058129

PATIENT
  Age: 50 Year
  Sex: Female
  Weight: 54.42 kg

DRUGS (2)
  1. LYRICA [Suspect]
     Indication: NEURALGIA
     Dosage: 50 MG, 1X/DAY
     Route: 048
     Dates: start: 201401
  2. LEVOTHYROXINE [Concomitant]
     Indication: THYROID DISORDER
     Dosage: 100 UG, DAILY

REACTIONS (6)
  - Product quality issue [Unknown]
  - Pruritus generalised [Recovered/Resolved]
  - Anger [Recovered/Resolved]
  - Agitation [Recovered/Resolved]
  - Tinnitus [Recovered/Resolved]
  - Formication [Recovered/Resolved]
